FAERS Safety Report 9751073 (Version 1)
Quarter: 2013Q4

REPORT INFORMATION
  Report Type: Spontaneous
  Country: US (occurrence: US)
  Receive Date: 20131212
  Receipt Date: 20131212
  Transmission Date: 20140711
  Serious: No
  Sender: FDA-Public Use
  Company Number: US-TEVA-400985USA

PATIENT
  Age: 46 Year
  Sex: Female
  Weight: 68.1 kg

DRUGS (2)
  1. PARAGARD 380A [Suspect]
     Indication: CONTRACEPTION
     Route: 015
     Dates: start: 20121229
  2. TRAZODONE [Concomitant]
     Indication: INSOMNIA
     Dosage: 200 MILLIGRAM DAILY;
     Route: 048

REACTIONS (2)
  - Menorrhagia [Not Recovered/Not Resolved]
  - Menometrorrhagia [Not Recovered/Not Resolved]
